FAERS Safety Report 7551493-2 (Version None)
Quarter: 2011Q2

REPORT INFORMATION
  Report Type: 
  Country: None (occurrence: None)
  Receive Date: 20110616
  Receipt Date: 20110602
  Transmission Date: 20111010
  Serious: Yes (Other)
  Sender: FDA-Public Use
  Company Number: US-ELI_LILLY_AND_COMPANY-US201009001287

PATIENT
  Sex: Female

DRUGS (5)
  1. FORTEO [Suspect]
     Dosage: 20 UG, DAILY (1/D)
  2. FORTEO [Suspect]
     Dosage: 20 UG, QD
     Dates: end: 20110501
  3. THYROID THERAPY [Concomitant]
     Indication: THYROID DISORDER
  4. FORTEO [Suspect]
     Indication: OSTEOPOROSIS
     Dosage: 20 UG, DAILY (1/D)
     Dates: start: 20100801
  5. FORTEO [Suspect]
     Dosage: 20 UG, DAILY (1/D)

REACTIONS (4)
  - FATIGUE [None]
  - FALL [None]
  - HIP FRACTURE [None]
  - ARTHRALGIA [None]
